FAERS Safety Report 8501984-2 (Version None)
Quarter: 2012Q2

REPORT INFORMATION
  Report Type: 
  Country: None (occurrence: None)
  Receive Date: 20120405
  Receipt Date: 20110322
  Transmission Date: 20120825
  Serious: Yes (Other)
  Sender: FDA-Public Use
  Company Number: PHHY2011US23943

PATIENT
  Sex: Female

DRUGS (11)
  1. ASPIRIN [Concomitant]
  2. VITAMIN D [Concomitant]
  3. RECLAST [Suspect]
     Dosage: 5 MG PER YEAR, INTRAVENOUS, 5 MG, INTRAVENOUS
     Route: 042
     Dates: start: 20100601
  4. RECLAST [Suspect]
     Dosage: 5 MG PER YEAR, INTRAVENOUS, 5 MG, INTRAVENOUS
     Route: 042
     Dates: start: 20100601
  5. VITAMIN E (TOCOPHERYL) [Concomitant]
  6. LIPITOR [Concomitant]
  7. ZYRTEC [Concomitant]
  8. CALCIUM CARBONATE [Concomitant]
  9. CALCIUM CARBONATE [Concomitant]
  10. MULTIVITAMIN [Concomitant]
  11. ASCORBIC ACID [Concomitant]

REACTIONS (3)
  - ARTHRALGIA [None]
  - GROIN PAIN [None]
  - ARTHRITIS [None]
